FAERS Safety Report 11062344 (Version 2)
Quarter: 2015Q2

REPORT INFORMATION
  Report Type: Spontaneous
  Country: US (occurrence: US)
  Receive Date: 20150424
  Receipt Date: 20150507
  Transmission Date: 20150821
  Serious: Yes (Other)
  Sender: FDA-Public Use
  Company Number: US-ALKERMES INC.-ALK-2014-003540

PATIENT

DRUGS (7)
  1. VIVITROL [Suspect]
     Active Substance: NALTREXONE
     Indication: ALCOHOLISM
  2. VYVANSE [Concomitant]
     Active Substance: LISDEXAMFETAMINE DIMESYLATE
     Indication: PRODUCT USED FOR UNKNOWN INDICATION
     Dosage: UNK
  3. VIVITROL [Suspect]
     Active Substance: NALTREXONE
     Indication: DRUG DEPENDENCE
     Dosage: 380 MG, QMO
     Route: 030
     Dates: start: 20140910, end: 20140910
  4. EFFEXOR [Concomitant]
     Active Substance: VENLAFAXINE HYDROCHLORIDE
     Indication: PRODUCT USED FOR UNKNOWN INDICATION
     Dosage: UNK
  5. BUSPAR [Concomitant]
     Active Substance: BUSPIRONE HYDROCHLORIDE
     Indication: PRODUCT USED FOR UNKNOWN INDICATION
     Dosage: UNK
  6. NALTREXONE [Concomitant]
     Active Substance: NALTREXONE
     Indication: PRODUCT USED FOR UNKNOWN INDICATION
     Dosage: UNK
     Route: 048
     Dates: start: 201409, end: 201409
  7. WELLBUTRIN [Concomitant]
     Active Substance: BUPROPION HYDROCHLORIDE
     Indication: PRODUCT USED FOR UNKNOWN INDICATION
     Dosage: UNK

REACTIONS (31)
  - Loss of consciousness [Recovered/Resolved]
  - Injection site swelling [Not Recovered/Not Resolved]
  - Dizziness [Recovered/Resolved]
  - Dyspnoea [Recovered/Resolved]
  - Lip swelling [Recovered/Resolved]
  - Tachycardia [Recovered/Resolved]
  - Arthralgia [Not Recovered/Not Resolved]
  - Alcohol use [Unknown]
  - Peripheral swelling [Unknown]
  - Injection site pain [Not Recovered/Not Resolved]
  - Swelling face [Unknown]
  - Alcoholism [Not Recovered/Not Resolved]
  - Throat tightness [Recovered/Resolved]
  - Weight increased [Unknown]
  - Serum sickness [Recovering/Resolving]
  - Hypoaesthesia [Unknown]
  - Nausea [Recovered/Resolved]
  - Hypersensitivity [Recovering/Resolving]
  - Fluid retention [Unknown]
  - Renal disorder [Unknown]
  - Hyperhidrosis [Recovered/Resolved]
  - Swelling [Recovering/Resolving]
  - Skin warm [Recovered/Resolved]
  - Vomiting [Recovered/Resolved]
  - Injection site reaction [Not Recovered/Not Resolved]
  - Injection site induration [Not Recovered/Not Resolved]
  - Chest pain [Recovered/Resolved]
  - Syncope [Recovered/Resolved]
  - Abdominal distension [Recovering/Resolving]
  - Movement disorder [Unknown]
  - Abdominal pain [Not Recovered/Not Resolved]

NARRATIVE: CASE EVENT DATE: 20140922
